FAERS Safety Report 10548987 (Version 1)
Quarter: 2014Q4

REPORT INFORMATION
  Report Type: Spontaneous
  Country: US (occurrence: None)
  Receive Date: 20141015
  Receipt Date: 20141015
  Transmission Date: 20150529
  Serious: Yes (Hospitalization)
  Sender: FDA-Public Use
  Company Number: 2014US003413

PATIENT
  Age: 67 Year
  Sex: Male
  Weight: 103 kg

DRUGS (7)
  1. ASA (ASA) [Concomitant]
  2. ATENOLOL (ATENOLOL) [Concomitant]
     Active Substance: ATENOLOL
  3. ICLUSIG [Suspect]
     Active Substance: PONATINIB
     Indication: CHRONIC MYELOID LEUKAEMIA
     Route: 048
     Dates: start: 20140514
  4. LISINOPRIL (LISINOPRIL DIHYDRATE) [Concomitant]
  5. ATROPINE W/DIPHENOXYLATE (ATROPINE SULFATE, DIPHENOXYLATE HYDROCHLORIDE) [Concomitant]
  6. METFORMIN [Concomitant]
     Active Substance: METFORMIN HYDROCHLORIDE
  7. SIMVASTATIN (SIMVASTATIN) [Concomitant]
     Active Substance: SIMVASTATIN

REACTIONS (2)
  - Pancreatitis [None]
  - Hyponatraemia [None]

NARRATIVE: CASE EVENT DATE: 20140610
